FAERS Safety Report 16807077 (Version 4)
Quarter: 2020Q3

REPORT INFORMATION
  Report Type: Spontaneous
  Country: CZ (occurrence: CZ)
  Receive Date: 20190913
  Receipt Date: 20200728
  Transmission Date: 20201102
  Serious: Yes (Life-Threatening, Other)
  Sender: FDA-Public Use
  Company Number: CZ-GLAXOSMITHKLINE-CZ2019EME166022

PATIENT
  Age: 42 Year
  Sex: Female

DRUGS (1)
  1. NUCALA [Suspect]
     Active Substance: MEPOLIZUMAB
     Indication: ASTHMA
     Dosage: 100 MG, UNK, EVERY 4 WEEK
     Route: 058
     Dates: start: 20190225, end: 20200204

REACTIONS (2)
  - Abortion spontaneous [Recovered/Resolved]
  - Exposure during pregnancy [Unknown]

NARRATIVE: CASE EVENT DATE: 20190611
